FAERS Safety Report 20156354 (Version 1)
Quarter: 2021Q4

REPORT INFORMATION
  Report Type: Report from Study
  Country: ES (occurrence: ES)
  Receive Date: 20211207
  Receipt Date: 20211207
  Transmission Date: 20220303
  Serious: Yes (Hospitalization)
  Sender: FDA-Public Use
  Company Number: ES-ABBVIE-21K-144-4011648-00

PATIENT
  Age: 75 Year
  Sex: Male

DRUGS (9)
  1. PAROXETINE [Suspect]
     Active Substance: PAROXETINE
     Indication: Psychiatric symptom
     Dosage: 2, UNK, QD
     Route: 048
     Dates: start: 2021, end: 202109
  2. PAROXETINE [Suspect]
     Active Substance: PAROXETINE
     Dosage: INCREASED
     Route: 048
     Dates: start: 202109
  3. CARBIDOPA\LEVODOPA [Suspect]
     Active Substance: CARBIDOPA\LEVODOPA
     Indication: Parkinson^s disease
     Dosage: UNK
     Route: 050
     Dates: start: 20161116, end: 2021
  4. CARBIDOPA\LEVODOPA [Suspect]
     Active Substance: CARBIDOPA\LEVODOPA
     Dosage: DOSES UPDATED
     Route: 050
     Dates: start: 2021, end: 2021
  5. CARBIDOPA\LEVODOPA [Suspect]
     Active Substance: CARBIDOPA\LEVODOPA
     Dosage: DECREASED DOSES OF DUODOPA DURING THE DAY
     Route: 050
     Dates: start: 2021
  6. OLANZAPINE [Suspect]
     Active Substance: OLANZAPINE
     Indication: Product used for unknown indication
     Dosage: UNK
     Route: 048
     Dates: start: 2021, end: 202109
  7. OLANZAPINE [Suspect]
     Active Substance: OLANZAPINE
     Dosage: 1, UNK, QD (PROGRESSIVELY INCREASED)
     Route: 048
     Dates: start: 202109
  8. CLORAZEPATE DIPOTASSIUM [Suspect]
     Active Substance: CLORAZEPATE DIPOTASSIUM
     Indication: Psychiatric symptom
     Dosage: 1, UNK, QD
     Route: 048
     Dates: start: 2021, end: 202109
  9. RIVASTIGMINE [Suspect]
     Active Substance: RIVASTIGMINE
     Indication: Cognitive disorder
     Dosage: 1, UNK, QD
     Route: 048
     Dates: start: 202109

REACTIONS (9)
  - Therapeutic response shortened [Unknown]
  - On and off phenomenon [Not Recovered/Not Resolved]
  - Hypersexuality [Recovering/Resolving]
  - Device occlusion [Unknown]
  - Extra dose administered [Unknown]
  - Cognitive disorder [Not Recovered/Not Resolved]
  - Mobility decreased [Not Recovered/Not Resolved]
  - Loss of personal independence in daily activities [Unknown]
  - Hallucination [Recovering/Resolving]

NARRATIVE: CASE EVENT DATE: 20210501
